FAERS Safety Report 24795013 (Version 1)
Quarter: 2024Q4

REPORT INFORMATION
  Report Type: Spontaneous
  Country: US (occurrence: None)
  Receive Date: 20241231
  Receipt Date: 20241231
  Transmission Date: 20250114
  Serious: Yes (Hospitalization, Disabling)
  Sender: Public
  Company Number: None

PATIENT
  Age: 25 Year
  Sex: Male
  Weight: 54 kg

DRUGS (4)
  1. TRAZODONE [Suspect]
     Active Substance: TRAZODONE HYDROCHLORIDE
     Indication: Depression
     Dosage: OTHER QUANTITY : 25 TABLET(S);?FREQUENCY : AS NEEDED;?
     Route: 048
  2. TRAZODONE [Suspect]
     Active Substance: TRAZODONE HYDROCHLORIDE
     Indication: Sleep disorder
  3. CITALOPRAM [Suspect]
     Active Substance: CITALOPRAM
  4. VITAMINS [Concomitant]
     Active Substance: VITAMINS

REACTIONS (8)
  - Delusion [None]
  - Suicidal ideation [None]
  - Fear [None]
  - Asthenia [None]
  - Nonspecific reaction [None]
  - Depression [None]
  - Sleep disorder [None]
  - Condition aggravated [None]
